FAERS Safety Report 4684281-5 (Version None)
Quarter: 2005Q2

REPORT INFORMATION
  Report Type: 
  Country: None (occurrence: None)
  Receive Date: 20050531
  Receipt Date: 20041003
  Transmission Date: 20051028
  Serious: Yes (Hospitalization)
  Sender: FDA-Public Use
  Company Number: 200417554US

PATIENT
  Age: 59 Year
  Sex: Male

DRUGS (9)
  1. LOVENOX [Suspect]
     Indication: HEART VALVE REPLACEMENT
     Dosage: 100 MG Q12H, SC
     Route: 058
     Dates: end: 20041002
  2. AMIODARONE [Concomitant]
  3. ANTIHYPERTENSIVES (NOS) [Concomitant]
  4. CARDIZEM [Concomitant]
  5. CLONIDINE [Concomitant]
  6. NORVASC [Concomitant]
  7. H2 BLOCKER [Concomitant]
  8. METFORMN HYDROCHLORIDE [Concomitant]
  9. WARFARIN SODIUM [Concomitant]

REACTIONS (2)
  - GINGIVAL BLEEDING [None]
  - HAEMOGLOBIN DECREASED [None]
